FAERS Safety Report 9757286 (Version 2)
Quarter: 2013Q4

REPORT INFORMATION
  Report Type: Report from Study
  Country: US (occurrence: US)
  Receive Date: 20131213
  Receipt Date: 20131213
  Transmission Date: 20140711
  Serious: Yes (Hospitalization, Other)
  Sender: FDA-Public Use
  Company Number: US-ABBVIE-13P-163-1169998-00

PATIENT
  Age: 11 Year
  Sex: Female

DRUGS (4)
  1. HUMIRA [Suspect]
     Indication: COLITIS ULCERATIVE
     Dosage: DAY 1
     Dates: start: 20131031, end: 20131031
  2. HUMIRA [Suspect]
  3. PREDNISONE [Concomitant]
     Dosage: TAPERING DOWN PRIOR TO STARTING HUMIRA
     Dates: start: 201310
  4. CANASA [Concomitant]
     Indication: HAEMATOCHEZIA

REACTIONS (14)
  - Haematochezia [Not Recovered/Not Resolved]
  - Injection site bruising [Unknown]
  - Petechiae [Unknown]
  - Pyrexia [Not Recovered/Not Resolved]
  - Headache [Not Recovered/Not Resolved]
  - Nausea [Not Recovered/Not Resolved]
  - Vomiting [Not Recovered/Not Resolved]
  - Decreased appetite [Unknown]
  - Adverse drug reaction [Recovered/Resolved]
  - Vitamin D decreased [Unknown]
  - Blood zinc decreased [Unknown]
  - Anxiety [Unknown]
  - Depression [Unknown]
  - Platelet count decreased [Unknown]
